FAERS Safety Report 6662914-1 (Version None)
Quarter: 2010Q2

REPORT INFORMATION
  Report Type: 
  Country: None (occurrence: None)
  Receive Date: 20100401
  Receipt Date: 20100322
  Transmission Date: 20101027
  Serious: Yes (Hospitalization)
  Sender: FDA-Public Use
  Company Number: BE-ABBOTT-10P-013-0627109-00

PATIENT
  Sex: Female

DRUGS (10)
  1. HUMIRA [Suspect]
     Indication: RHEUMATOID ARTHRITIS
     Route: 058
     Dates: start: 20080429
  2. PLAVIX [Concomitant]
     Indication: DRUG USE FOR UNKNOWN INDICATION
  3. ASAFLOW [Concomitant]
     Indication: DRUG USE FOR UNKNOWN INDICATION
     Dosage: 80 1/DAY
  4. DOCBISOPRO [Concomitant]
     Indication: DRUG USE FOR UNKNOWN INDICATION
     Dosage: 10 1/DAY
  5. DOCOMEPRAZO [Concomitant]
     Indication: DRUG USE FOR UNKNOWN INDICATION
     Dosage: 20 1/DAY
  6. XANAX [Concomitant]
     Indication: DRUG USE FOR UNKNOWN INDICATION
  7. DOCTRAZODONE [Concomitant]
     Indication: DRUG USE FOR UNKNOWN INDICATION
  8. DOCSIMVASTATINE [Concomitant]
     Indication: DRUG USE FOR UNKNOWN INDICATION
     Dosage: 40 1/DAY
  9. GRURENORM [Concomitant]
     Indication: DRUG USE FOR UNKNOWN INDICATION
     Dosage: 1/DAY
  10. PROTHIADEN [Concomitant]
     Indication: DRUG USE FOR UNKNOWN INDICATION

REACTIONS (16)
  - ARTHRALGIA [None]
  - BONE PAIN [None]
  - DECREASED APPETITE [None]
  - DEPRESSION [None]
  - DYSPNOEA [None]
  - FATIGUE [None]
  - MUSCULAR WEAKNESS [None]
  - MYALGIA [None]
  - NERVOUSNESS [None]
  - PHARYNGEAL DISORDER [None]
  - PRODUCTIVE COUGH [None]
  - SENSATION OF PRESSURE [None]
  - SPINAL COLUMN STENOSIS [None]
  - STRESS [None]
  - VERTIGO [None]
  - VOMITING [None]
